FAERS Safety Report 14440799 (Version 1)
Quarter: 2018Q1

REPORT INFORMATION
  Report Type: Spontaneous
  Country: US (occurrence: US)
  Receive Date: 20180125
  Receipt Date: 20180125
  Transmission Date: 20180509
  Serious: No
  Sender: FDA-Public Use
  Company Number: US-AMGEN-USASP2017172958

PATIENT
  Sex: Female

DRUGS (18)
  1. REPATHA [Suspect]
     Active Substance: EVOLOCUMAB
     Indication: HYPERCHOLESTEROLAEMIA
  2. ISOSORB DINIT [Concomitant]
     Dosage: 30 MG, UNK
  3. PREDNISONE. [Concomitant]
     Active Substance: PREDNISONE
     Dosage: 20 MG, UNK
  4. REPATHA [Suspect]
     Active Substance: EVOLOCUMAB
     Indication: MYOCARDIAL INFARCTION
     Dosage: 140 MG, Q2WK
     Route: 058
     Dates: start: 20160514
  5. EFFIENT [Concomitant]
     Active Substance: PRASUGREL HYDROCHLORIDE
     Dosage: 10 MG, UNK
  6. NITROSTAT [Concomitant]
     Active Substance: NITROGLYCERIN
     Dosage: 0.4 MG, UNK
     Route: 058
  7. RANEXA [Concomitant]
     Active Substance: RANOLAZINE
     Dosage: 500 MG, UNK
  8. OMEGA-3-ACID ETHYL ESTER [Concomitant]
     Active Substance: OMEGA-3-ACID ETHYL ESTERS
     Dosage: 1 G, UNK
  9. AZITHROMYCIN ANHYDROUS. [Concomitant]
     Active Substance: AZITHROMYCIN ANHYDROUS
     Dosage: 250 MG, UNK
  10. BREO ELLIPTA [Concomitant]
     Active Substance: FLUTICASONE FUROATE\VILANTEROL TRIFENATATE
     Dosage: 200-25
     Route: 045
  11. OXCARBAZEPIN [Concomitant]
     Active Substance: OXCARBAZEPINE
     Dosage: 300 MG, UNK
  12. ALPRAZOLAM. [Concomitant]
     Active Substance: ALPRAZOLAM
     Dosage: 0.25 MG, UNK
  13. COREG CR [Concomitant]
     Active Substance: CARVEDILOL PHOSPHATE
     Dosage: 40 MG, UNK
  14. ESCITALOPRAM [Concomitant]
     Active Substance: ESCITALOPRAM OXALATE
     Dosage: 20 MG, UNK
  15. LOSARTAN POTASSIUM. [Concomitant]
     Active Substance: LOSARTAN POTASSIUM
     Dosage: 25 MG, UNK
  16. MONTELUKAST [Concomitant]
     Active Substance: MONTELUKAST SODIUM
     Dosage: 10 MG, UNK
  17. PROAIR HFA [Concomitant]
     Active Substance: ALBUTEROL SULFATE
     Dosage: UNK
  18. QVAR [Concomitant]
     Active Substance: BECLOMETHASONE DIPROPIONATE
     Dosage: 80 MCG UNK

REACTIONS (1)
  - Papule [Not Recovered/Not Resolved]

NARRATIVE: CASE EVENT DATE: 2017
